FAERS Safety Report 23940318 (Version 1)
Quarter: 2024Q2

REPORT INFORMATION
  Report Type: Spontaneous
  Country: AU (occurrence: AU)
  Receive Date: 20240605
  Receipt Date: 20240605
  Transmission Date: 20240716
  Serious: Yes (Other)
  Sender: FDA-Public Use
  Company Number: AU-ABBVIE-4217105

PATIENT

DRUGS (2)
  1. ADALIMUMAB [Suspect]
     Active Substance: ADALIMUMAB\ISOPROPYL ALCOHOL
     Indication: Hidradenitis
     Dosage: 40 MG 9SOLUTION FOR INJECTION IN PRE-FILLED PEN; INTERVAL: 1 WEEK)
     Route: 058
  2. ADALIMUMAB [Suspect]
     Active Substance: ADALIMUMAB\ISOPROPYL ALCOHOL
     Dosage: 80 MG (SOLUTION FOR INJECTION IN PRE-FILLED PEN; INTERVAL: 1 WEEK)
     Route: 058
     Dates: start: 2022

REACTIONS (2)
  - Plastic surgery [Unknown]
  - Therapeutic product effect incomplete [Unknown]
